FAERS Safety Report 8535539-0 (Version None)
Quarter: 2012Q3

REPORT INFORMATION
  Report Type: 
  Country: None (occurrence: None)
  Receive Date: 20120725
  Receipt Date: 20120712
  Transmission Date: 20120928
  Serious: Yes (Hospitalization)
  Sender: FDA-Public Use
  Company Number: FR-009507513-1207FRA003342

PATIENT

DRUGS (12)
  1. LASIX [Concomitant]
     Indication: OEDEMA
     Dosage: 40 MG, QD
     Dates: start: 20110701
  2. VICTRELIS [Suspect]
     Indication: HEPATITIS C
     Dosage: 800 MG, TID
     Dates: start: 20110513
  3. REBETOL [Suspect]
     Indication: HEPATITIS C
     Dosage: 1000 MG, QD
     Dates: start: 20110414
  4. LEVOTHYROXINE SODIUM [Concomitant]
     Indication: HYPOTHYROIDISM
     Dosage: 25 MG, QD
     Dates: start: 20110701
  5. RAMIPRIL [Concomitant]
     Indication: HYPERTENSION
     Dosage: 1 DF, QD
     Dates: start: 19840101
  6. DIGOXIN [Concomitant]
     Indication: ATRIAL FIBRILLATION
     Dosage: UNK
     Dates: start: 19840101
  7. REBETOL [Suspect]
     Dosage: 800 MG, QD
     Dates: start: 20110927
  8. ALDACTONE [Concomitant]
     Indication: OEDEMA
     Dosage: 75 MG, QD
     Dates: start: 20111101
  9. SPIRONOLACTONE [Concomitant]
     Indication: HYPERTENSION
     Dosage: 75 MG, UNK
     Dates: start: 19840101
  10. VIRAFERONPEG [Suspect]
     Indication: HEPATITIS C
     Dosage: 1.5 MG/KG, QW
     Dates: start: 20110414
  11. PREVISCAN [Concomitant]
     Indication: ATRIAL FIBRILLATION
     Dosage: UNK
     Dates: start: 19840101
  12. LERCANIDIPINE [Concomitant]
     Indication: HYPERTENSION
     Dosage: 10 MG, UNK
     Dates: start: 19840101

REACTIONS (1)
  - ANAEMIA [None]
